FAERS Safety Report 21979870 (Version 3)
Quarter: 2023Q1

REPORT INFORMATION
  Report Type: Spontaneous
  Country: US (occurrence: US)
  Receive Date: 20230210
  Receipt Date: 20230301
  Transmission Date: 20230418
  Serious: No
  Sender: FDA-Public Use
  Company Number: US-PFIZER INC-202300060859

PATIENT
  Age: 8 Decade
  Sex: Male

DRUGS (1)
  1. PAXLOVID [Suspect]
     Active Substance: NIRMATRELVIR\RITONAVIR
     Indication: COVID-19 treatment
     Dosage: UNK
     Dates: start: 20230204, end: 20230209

REACTIONS (3)
  - Sputum discoloured [Recovered/Resolved]
  - Tongue disorder [Unknown]
  - Gingival discomfort [Unknown]

NARRATIVE: CASE EVENT DATE: 20230201
